FAERS Safety Report 12460127 (Version 1)
Quarter: 2016Q2

REPORT INFORMATION
  Report Type: Spontaneous
  Country: IN (occurrence: IN)
  Receive Date: 20160613
  Receipt Date: 20160613
  Transmission Date: 20160815
  Serious: Yes (Other)
  Sender: FDA-Public Use
  Company Number: IN-PFIZER INC-2016289411

PATIENT
  Age: 66 Year
  Sex: Male

DRUGS (1)
  1. CRIZALK [Suspect]
     Active Substance: CRIZOTINIB
     Indication: NON-SMALL CELL LUNG CANCER METASTATIC
     Dosage: 250 MG, 2X/DAY
     Route: 048
     Dates: start: 20140808

REACTIONS (6)
  - Spinal cord compression [Unknown]
  - Non-small cell lung cancer metastatic [Unknown]
  - Decreased appetite [Unknown]
  - Nausea [Unknown]
  - Disease progression [Unknown]
  - Weight decreased [Unknown]
